FAERS Safety Report 7041931-6 (Version None)
Quarter: 2010Q4

REPORT INFORMATION
  Report Type: 
  Country: None (occurrence: None)
  Receive Date: 20101013
  Receipt Date: 20100726
  Transmission Date: 20110411
  Serious: No
  Sender: FDA-Public Use
  Company Number: US-ASTRAZENECA-2010SE35069

PATIENT
  Sex: Male

DRUGS (3)
  1. SYMBICORT [Suspect]
     Dosage: 640 MCG TOTAL DAILY DOSE
     Route: 055
     Dates: start: 20090701
  2. PLAVIX [Concomitant]
  3. ALBUTEROL [Concomitant]

REACTIONS (3)
  - COUGH [None]
  - DRUG DOSE OMISSION [None]
  - DYSPNOEA [None]
